FAERS Safety Report 11604088 (Version 6)
Quarter: 2016Q3

REPORT INFORMATION
  Report Type: Report from Study
  Country: GB (occurrence: GB)
  Receive Date: 20151007
  Receipt Date: 20160819
  Transmission Date: 20161109
  Serious: Yes (Hospitalization)
  Sender: FDA-Public Use
  Company Number: GB-WATSON-2015-21390

PATIENT
  Age: 77 Year
  Sex: Male
  Weight: 172 kg

DRUGS (20)
  1. PREDNISOLONE (UNKNOWN) [Suspect]
     Active Substance: PREDNISOLONE
     Indication: DIFFUSE LARGE B-CELL LYMPHOMA
     Dosage: 100 MG, DAILY
     Route: 048
     Dates: start: 20150820, end: 20150824
  2. CYCLOPHOSPHAMIDE (UNKNOWN) [Suspect]
     Active Substance: CYCLOPHOSPHAMIDE
     Indication: DIFFUSE LARGE B-CELL LYMPHOMA
     Dosage: 1400 MG, DAILY
     Route: 042
     Dates: start: 20150820, end: 20150820
  3. ASPIRIN. [Concomitant]
     Active Substance: ASPIRIN
     Indication: AORTIC VALVE REPLACEMENT
     Dosage: 75 MG, DAILY
     Route: 048
     Dates: end: 20150826
  4. FILGRASTIM [Concomitant]
     Active Substance: FILGRASTIM
     Indication: WHITE BLOOD CELL COUNT
     Dosage: 300 ?G, DAILY
     Route: 058
     Dates: start: 20150823, end: 20150826
  5. HYDROXYCHLOROQUINE [Concomitant]
     Active Substance: HYDROXYCHLOROQUINE
     Indication: RHEUMATOID ARTHRITIS
     Dosage: 200 MG, BID
     Route: 048
     Dates: start: 20150814, end: 20150826
  6. FUROSEMIDE (UNKNOWN) [Suspect]
     Active Substance: FUROSEMIDE
     Dosage: 20 MG, UNK
     Route: 048
  7. MABTHERA [Suspect]
     Active Substance: RITUXIMAB
     Indication: DIFFUSE LARGE B-CELL LYMPHOMA
     Dosage: 375 MG/M2, DAILY
     Route: 042
     Dates: start: 20150820, end: 20150820
  8. DIGOXIN. [Concomitant]
     Active Substance: DIGOXIN
     Dosage: UNK
     Route: 065
     Dates: start: 20150815, end: 20150826
  9. FUROSEMIDE (UNKNOWN) [Suspect]
     Active Substance: FUROSEMIDE
     Indication: CARDIAC DISORDER
     Dosage: 40 MG, DAILY
     Route: 048
     Dates: end: 20150826
  10. INOTUZUMAB OZOGAMICIN [Suspect]
     Active Substance: INOTUZUMAB OZOGAMICIN
     Indication: DIFFUSE LARGE B-CELL LYMPHOMA
     Dosage: 1.5 MG, DAILY
     Route: 042
     Dates: start: 20150821
  11. FLUCONAZOLE. [Concomitant]
     Active Substance: FLUCONAZOLE
     Indication: ANTIFUNGAL PROPHYLAXIS
     Dosage: 50 MG, DAILY
     Route: 048
     Dates: start: 20150815, end: 20150826
  12. VINCRISTINE (UNKNOWN) [Suspect]
     Active Substance: VINCRISTINE
     Indication: DIFFUSE LARGE B-CELL LYMPHOMA
     Dosage: 2 MG, DAILY
     Route: 042
     Dates: start: 20150820, end: 20150820
  13. ALLOPURINOL. [Concomitant]
     Active Substance: ALLOPURINOL
     Indication: PROPHYLAXIS
     Dosage: 300 MG, DAILY
     Route: 048
     Dates: start: 20150815, end: 20150826
  14. CHLORPHENAMINE [Concomitant]
     Active Substance: CHLORPHENIRAMINE MALEATE
     Indication: UNEVALUABLE EVENT
     Dosage: 10 MG, DAILY
     Route: 042
     Dates: start: 20150820, end: 20150820
  15. LEFLUNOMIDE. [Concomitant]
     Active Substance: LEFLUNOMIDE
     Indication: RHEUMATOID ARTHRITIS
     Dosage: 20 MG, DAILY
     Route: 048
     Dates: start: 201107, end: 20150826
  16. METOCLOPRAMIDE. [Concomitant]
     Active Substance: METOCLOPRAMIDE
     Indication: VOMITING
     Dosage: UNK (10-20 MG), PRN
     Route: 048
     Dates: start: 20150820, end: 20150826
  17. MABTHERA [Suspect]
     Active Substance: RITUXIMAB
     Dosage: 720 MG, DAILY
     Route: 042
     Dates: start: 20150820, end: 20150820
  18. OMEPRAZOLE (UNKNOWN) [Suspect]
     Active Substance: OMEPRAZOLE
     Indication: GASTROINTESTINAL HAEMORRHAGE
     Dosage: 40 MG, DAILY
     Route: 048
     Dates: end: 20150826
  19. DIGOXIN. [Concomitant]
     Active Substance: DIGOXIN
     Indication: ATRIAL FIBRILLATION
     Dosage: 125 ?G, DAILY
     Route: 048
     Dates: end: 20150826
  20. ONDANSETRON [Concomitant]
     Active Substance: ONDANSETRON
     Indication: VOMITING
     Dosage: 8 MG, DAILY
     Route: 048
     Dates: start: 20150820, end: 20150820

REACTIONS (3)
  - Hyponatraemia [Recovered/Resolved]
  - Lower respiratory tract infection [Recovered/Resolved]
  - Blood lactic acid increased [Unknown]

NARRATIVE: CASE EVENT DATE: 20150825
